FAERS Safety Report 9733391 (Version 6)
Quarter: 2014Q2

REPORT INFORMATION
  Report Type: Spontaneous
  Country: JP (occurrence: JP)
  Receive Date: 20131205
  Receipt Date: 20140620
  Transmission Date: 20141212
  Serious: Yes (Hospitalization, Other)
  Sender: FDA-Public Use
  Company Number: JP-ABBVIE-12P-087-0995920-00

PATIENT
  Age: 69 Year
  Sex: Male
  Weight: 54.7 kg

DRUGS (14)
  1. HUMIRA [Suspect]
     Indication: PSORIATIC ARTHROPATHY
     Route: 058
     Dates: start: 20100602, end: 20100602
  2. HUMIRA [Suspect]
     Dates: start: 20100616, end: 20110705
  3. HUMIRA [Suspect]
     Dates: start: 20120330, end: 20120330
  4. HUMIRA [Suspect]
     Dates: start: 20120413, end: 20120511
  5. HUMIRA [Suspect]
     Dates: start: 20120525, end: 20120525
  6. HUMIRA [Suspect]
     Dates: start: 20120608, end: 20120622
  7. PREDNISOLONE [Suspect]
     Indication: PSORIATIC ARTHROPATHY
     Route: 048
     Dates: end: 20100716
  8. PREDNISOLONE [Suspect]
     Indication: ARTHRALGIA
     Dates: start: 20100825, end: 20101120
  9. PREDNISOLONE [Suspect]
     Dates: start: 20120511, end: 20121009
  10. REMICADE [Suspect]
     Indication: PSORIATIC ARTHROPATHY
     Dates: start: 20120702, end: 20120821
  11. BETAMETHASONE DIPROPIONATE [Concomitant]
     Indication: PSORIATIC ARTHROPATHY
     Route: 061
     Dates: start: 20100616
  12. CALCIPOTRIOL [Concomitant]
     Indication: PSORIATIC ARTHROPATHY
     Route: 061
     Dates: start: 20100616
  13. OLOPATADINE HYDROCHLORIDE [Concomitant]
     Indication: PSORIATIC ARTHROPATHY
     Route: 048
     Dates: start: 20100630
  14. ROSUVASTATIN CALCIUM [Concomitant]
     Indication: HYPERLIPIDAEMIA
     Route: 048
     Dates: start: 201208

REACTIONS (13)
  - Cerebral infarction [Recovered/Resolved with Sequelae]
  - Disseminated tuberculosis [Recovering/Resolving]
  - Immunosuppression [Unknown]
  - Hemiplegia [Unknown]
  - Psoriasis [Unknown]
  - Hepatic cyst [Not Recovered/Not Resolved]
  - Arthralgia [Unknown]
  - Skin disorder [Unknown]
  - Rash pustular [Unknown]
  - Therapeutic product ineffective [Unknown]
  - Splenic granuloma [Unknown]
  - Drug eruption [Unknown]
  - Hepatic function abnormal [Unknown]
